FAERS Safety Report 7765569-8 (Version None)
Quarter: 2011Q3

REPORT INFORMATION
  Report Type: 
  Country: None (occurrence: None)
  Receive Date: 20110921
  Receipt Date: 20101130
  Transmission Date: 20111222
  Serious: No
  Sender: FDA-Public Use
  Company Number: US-BAYER-2010-003882

PATIENT
  Age: 58 Year
  Sex: Male

DRUGS (1)
  1. LEVITRA [Suspect]
     Indication: ERECTILE DYSFUNCTION
     Dosage: 20MG
     Dates: start: 20101124

REACTIONS (2)
  - NASAL CONGESTION [None]
  - ERECTILE DYSFUNCTION [None]
